FAERS Safety Report 4391609-2 (Version None)
Quarter: 2004Q3

REPORT INFORMATION
  Report Type: 
  Country: None (occurrence: None)
  Receive Date: 20040701
  Receipt Date: 20040616
  Transmission Date: 20050211
  Serious: Yes (Death, Hospitalization)
  Sender: FDA-Public Use
  Company Number: USA040670364

PATIENT
  Age: 58 Year
  Sex: Female

DRUGS (26)
  1. FLUOXETINE [Suspect]
     Dosage: 80 MG/1 DAY
  2. XANAX [Concomitant]
  3. VENTOLIN (SALBUTAMOL SULFATE) [Concomitant]
  4. LIPITOR [Concomitant]
  5. BUMEX [Concomitant]
  6. ESTRACE [Concomitant]
  7. PEPCID [Concomitant]
  8. LASIX [Concomitant]
  9. NEURONTIN [Concomitant]
  10. INDOCIN [Concomitant]
  11. TORADOL [Concomitant]
  12. REGLAN [Concomitant]
  13. NITROBID (NITROFURANTOIN) [Concomitant]
  14. ZYPREXA [Concomitant]
  15. POTASSIUM [Concomitant]
  16. ALTACE [Concomitant]
  17. AVANDIA [Concomitant]
  18. ZANAFLEX [Concomitant]
  19. VANCOMYCIN [Concomitant]
  20. TYLENOL [Concomitant]
  21. REGULAR INSULIN [Concomitant]
  22. DEMEROL [Concomitant]
  23. NITROSTAT [Concomitant]
  24. ZOFRAN [Concomitant]
  25. DARVOCET-N 100 [Concomitant]
  26. AMBIEN [Concomitant]

REACTIONS (1)
  - DRUG TOXICITY [None]
